FAERS Safety Report 18005072 (Version 1)
Quarter: 2020Q3

REPORT INFORMATION
  Report Type: Spontaneous
  Country: FR (occurrence: FR)
  Receive Date: 20200710
  Receipt Date: 20200710
  Transmission Date: 20201103
  Serious: Yes (Life-Threatening, Hospitalization)
  Sender: FDA-Public Use
  Company Number: FR-ACCORD-189912

PATIENT
  Age: 24 Year
  Sex: Female
  Weight: 59 kg

DRUGS (8)
  1. CLAMOXYL [AMOXICILLIN] [Suspect]
     Active Substance: AMOXICILLIN
     Indication: ANTIBIOTIC THERAPY
     Route: 048
     Dates: start: 20200403
  2. VALIUM [Concomitant]
     Active Substance: DIAZEPAM
     Indication: ANXIETY
     Dosage: STRENGTH: 10 MG, SCORED TABLET
     Route: 048
     Dates: start: 20200427, end: 20200612
  3. TERCIAN [Concomitant]
     Active Substance: CYAMEMAZINE
     Indication: ANXIETY
     Route: 048
     Dates: start: 20200427, end: 20200612
  4. METHOTREXATE. [Suspect]
     Active Substance: METHOTREXATE
     Indication: ACUTE UNDIFFERENTIATED LEUKAEMIA
     Dosage: 1G/METER SQUARE
     Route: 051
     Dates: start: 20200204, end: 20200420
  5. ZELITREX [Concomitant]
     Active Substance: VALACYCLOVIR HYDROCHLORIDE
     Dosage: STRENGTH: 500 MG
  6. CORTANCYL [Concomitant]
     Active Substance: PREDNISONE
     Indication: GRAFT VERSUS HOST DISEASE
     Dosage: STRENGTH: 20 MG
     Route: 048
     Dates: start: 20200403
  7. PURINETHOL [Suspect]
     Active Substance: MERCAPTOPURINE
     Indication: RADIOTHERAPY TO HEAD AND NECK
     Dosage: STRENGTH: 50 MG, SCORED TABLET
     Route: 048
     Dates: start: 20200514, end: 20200609
  8. BACTRIM [Suspect]
     Active Substance: SULFAMETHOXAZOLE\TRIMETHOPRIM
     Indication: PROPHYLAXIS
     Route: 048
     Dates: start: 2018

REACTIONS (3)
  - Hepatocellular injury [Recovering/Resolving]
  - Pancytopenia [Not Recovered/Not Resolved]
  - Eosinophilia [Not Recovered/Not Resolved]

NARRATIVE: CASE EVENT DATE: 20200603
